FAERS Safety Report 6091089-5 (Version None)
Quarter: 2009Q1

REPORT INFORMATION
  Report Type: 
  Country: None (occurrence: None)
  Receive Date: 20090225
  Receipt Date: 20090212
  Transmission Date: 20090719
  Serious: Yes (Hospitalization, Other)
  Sender: FDA-Public Use
  Company Number: JP-PFIZER INC-2008160271

PATIENT

DRUGS (4)
  1. SOLU-MEDROL [Suspect]
     Dosage: 80 MG, 1X/DAY
     Route: 042
     Dates: start: 20081209, end: 20081211
  2. SOLU-MEDROL [Suspect]
     Dosage: 1000 MG, 1X/DAY
     Route: 042
     Dates: start: 20081204, end: 20081205
  3. SOLU-MEDROL [Suspect]
     Dosage: 125 MG, 1X/DAY
     Route: 042
     Dates: start: 20081206, end: 20081208
  4. SOLU-MEDROL [Suspect]
     Dosage: 40 MG, 1X/DAY
     Route: 042
     Dates: start: 20081212, end: 20081214

REACTIONS (1)
  - LIVER DISORDER [None]
